FAERS Safety Report 6136752-2 (Version None)
Quarter: 2009Q1

REPORT INFORMATION
  Report Type: 
  Country: None (occurrence: None)
  Receive Date: 20090330
  Receipt Date: 20090319
  Transmission Date: 20090719
  Serious: Yes (Hospitalization)
  Sender: FDA-Public Use
  Company Number: FR-ELI_LILLY_AND_COMPANY-FR200903004802

PATIENT
  Sex: Male

DRUGS (1)
  1. BYETTA [Suspect]
     Dosage: 5 UG, 2/D
     Route: 065
     Dates: start: 20080909, end: 20081001

REACTIONS (3)
  - INSOMNIA [None]
  - PSYCHIATRIC DECOMPENSATION [None]
  - PSYCHOMOTOR HYPERACTIVITY [None]
